FAERS Safety Report 6765325-3 (Version None)
Quarter: 2010Q2

REPORT INFORMATION
  Report Type: 
  Country: None (occurrence: None)
  Receive Date: 20100610
  Receipt Date: 20100610
  Transmission Date: 20101027
  Serious: Yes (Hospitalization)
  Sender: FDA-Public Use
  Company Number: None

PATIENT
  Sex: Male
  Weight: 90 kg

DRUGS (15)
  1. SUTENT [Suspect]
     Indication: BLADDER CANCER
     Dosage: 37.5 DAILY ORAL
     Route: 048
     Dates: start: 20100318, end: 20100609
  2. LOPERAMIDE [Concomitant]
  3. NEXIUM [Concomitant]
  4. HYDRALAZINE HCL [Concomitant]
  5. LISINOPRIL AND HYDROCHLOROTHIAZIDE [Concomitant]
  6. COLACE [Concomitant]
  7. AGGRENOX [Concomitant]
  8. ALLOPURINOL [Concomitant]
  9. ACTOS [Concomitant]
  10. COLCHICINE [Concomitant]
  11. MINOCYCLINE HCL [Concomitant]
  12. NIFEDIAC [Concomitant]
  13. ZETIA [Concomitant]
  14. COSOPT [Concomitant]
  15. LUMIGAN [Concomitant]

REACTIONS (6)
  - ANAEMIA [None]
  - DIVERTICULITIS INTESTINAL HAEMORRHAGIC [None]
  - HAEMORRHOIDS [None]
  - HYPOVOLAEMIA [None]
  - RECTAL HAEMORRHAGE [None]
  - RENAL FAILURE ACUTE [None]
